FAERS Safety Report 17796605 (Version 2)
Quarter: 2020Q4

REPORT INFORMATION
  Report Type: Other
  Country: CA (occurrence: CA)
  Receive Date: 20200518
  Receipt Date: 20201228
  Transmission Date: 20210113
  Serious: Yes (Other)
  Sender: FDA-Public Use
  Company Number: CA-ROCHE-2580269

PATIENT
  Age: 26 Year
  Sex: Female
  Weight: 127 kg

DRUGS (7)
  1. PANTOLOC [Concomitant]
     Active Substance: PANTOPRAZOLE SODIUM
  2. TYLENOL [Concomitant]
     Active Substance: ACETAMINOPHEN
  3. ANAKINRA [Concomitant]
     Active Substance: ANAKINRA
  4. CALCIUM [Concomitant]
     Active Substance: CALCIUM
  5. ACTEMRA [Suspect]
     Active Substance: TOCILIZUMAB
     Indication: STILL^S DISEASE
     Dosage: ONGOING
     Route: 042
     Dates: start: 20200304
  6. MEDROL [Concomitant]
     Active Substance: METHYLPREDNISOLONE
  7. QUETIAPINE. [Concomitant]
     Active Substance: QUETIAPINE

REACTIONS (4)
  - Weight decreased [Recovered/Resolved]
  - Poor venous access [Unknown]
  - Weight increased [Recovering/Resolving]
  - Rhinorrhoea [Recovered/Resolved]

NARRATIVE: CASE EVENT DATE: 20200403
